FAERS Safety Report 6262494-9 (Version None)
Quarter: 2009Q3

REPORT INFORMATION
  Report Type: 
  Country: None (occurrence: None)
  Receive Date: 20090709
  Receipt Date: 20090619
  Transmission Date: 20100115
  Serious: Yes (Other)
  Sender: FDA-Public Use
  Company Number: PHHY2009BR24557

PATIENT
  Sex: Female

DRUGS (2)
  1. FEMARA [Suspect]
     Dosage: 2.5 MG, UNK
  2. DRUG THERAPY NOS [Concomitant]
     Indication: NEOPLASM MALIGNANT

REACTIONS (2)
  - ALOPECIA [None]
  - DEPRESSED MOOD [None]
